FAERS Safety Report 5165031-5 (Version None)
Quarter: 2006Q4

REPORT INFORMATION
  Report Type: 
  Country: None (occurrence: None)
  Receive Date: 20061124
  Receipt Date: 20061117
  Transmission Date: 20070319
  Serious: Yes (Hospitalization, Other)
  Sender: FDA-Public Use
  Company Number: 2006128998

PATIENT
  Age: 54 Year
  Sex: Female

DRUGS (5)
  1. ZOLOFT [Suspect]
     Indication: DEPRESSION
     Dosage: 125 MG (31.25 MG, 4 IN 1 D) ORAL
     Route: 048
     Dates: start: 20060712, end: 20060724
  2. ROHYPNOL (FLUNITRAZEPAM) [Suspect]
     Indication: INSOMNIA
     Dosage: 1 MG, ORAL
     Route: 048
     Dates: start: 20060712, end: 20060724
  3. AMOXAPINE [Concomitant]
  4. MIRADOL (SULPIRIDE) [Concomitant]
  5. LEXOTAN (BROMAZEPAM) [Concomitant]

REACTIONS (7)
  - ABULIA [None]
  - AKATHISIA [None]
  - DRUG INEFFECTIVE [None]
  - IRRITABILITY [None]
  - MENTAL IMPAIRMENT [None]
  - PSYCHIATRIC SYMPTOM [None]
  - SUICIDE ATTEMPT [None]
